FAERS Safety Report 7237212-8 (Version None)
Quarter: 2011Q1

REPORT INFORMATION
  Report Type: 
  Country: None (occurrence: None)
  Receive Date: 20110121
  Receipt Date: 20110104
  Transmission Date: 20110831
  Serious: No
  Sender: FDA-Public Use
  Company Number: US-B.I. PHARMACEUTICALS,INC./RIDGEFIELD-2011-BP-00585BP

PATIENT
  Sex: Female

DRUGS (3)
  1. SPIRIVA [Suspect]
     Indication: CHRONIC OBSTRUCTIVE PULMONARY DISEASE
     Dosage: 18 MCG
     Route: 055
     Dates: start: 20101101, end: 20101101
  2. CRESTOR [Concomitant]
     Indication: BLOOD CHOLESTEROL INCREASED
     Dosage: 5 MG
     Route: 048
  3. RAMIPRIL [Concomitant]
     Indication: CARDIOVASCULAR EVENT PROPHYLAXIS
     Dosage: 10 MG
     Route: 048

REACTIONS (8)
  - THIRST [None]
  - VISUAL ACUITY REDUCED [None]
  - WEIGHT INCREASED [None]
  - EYE PRURITUS [None]
  - DRY MOUTH [None]
  - LACRIMATION INCREASED [None]
  - VISION BLURRED [None]
  - EYE PAIN [None]
